FAERS Safety Report 14956882 (Version 1)
Quarter: 2018Q2

REPORT INFORMATION
  Report Type: Spontaneous
  Country: FR (occurrence: FR)
  Receive Date: 20180531
  Receipt Date: 20180531
  Transmission Date: 20180711
  Serious: Yes (Hospitalization)
  Sender: FDA-Public Use
  Company Number: FR-ROCHE-2132581

PATIENT
  Age: 67 Year
  Sex: Female
  Weight: 64 kg

DRUGS (5)
  1. ZANEXTRA [Concomitant]
     Active Substance: ENALAPRIL MALEATE\LERCANIDIPINE HYDROCHLORIDE
     Dosage: 20MG
     Route: 048
  2. TENSTATEN [Concomitant]
     Active Substance: CICLETANINE HYDROCHLORIDE
     Dosage: 50 MG
     Route: 048
     Dates: start: 201801
  3. AVASTIN [Suspect]
     Active Substance: BEVACIZUMAB
     Indication: OVARIAN EPITHELIAL CANCER
     Dosage: LAST DOSE ON DEC/2017
     Route: 042
     Dates: start: 20170711
  4. PREVISCAN (FRANCE) [Concomitant]
     Active Substance: FLUINDIONE
     Dosage: 20 MG
     Route: 048
  5. FUROSEMIDE. [Concomitant]
     Active Substance: FUROSEMIDE
     Route: 048

REACTIONS (1)
  - Hypertensive nephropathy [Recovered/Resolved]

NARRATIVE: CASE EVENT DATE: 20180123
